FAERS Safety Report 9186273 (Version 5)
Quarter: 2013Q2

REPORT INFORMATION
  Report Type: Spontaneous
  Country: JP (occurrence: JP)
  Receive Date: 20130325
  Receipt Date: 20130611
  Transmission Date: 20140414
  Serious: Yes (Hospitalization)
  Sender: FDA-Public Use
  Company Number: JP-GLAXOSMITHKLINE-B0875637A

PATIENT
  Age: 25 Year
  Sex: Female
  Weight: 53 kg

DRUGS (6)
  1. LAMICTAL [Suspect]
     Indication: DEPRESSION
     Dosage: 25MG ALTERNATE DAYS
     Route: 048
     Dates: start: 20130227, end: 20130321
  2. REMERON [Suspect]
     Indication: PRODUCT USED FOR UNKNOWN INDICATION
     Dosage: 15MG PER DAY
     Route: 048
     Dates: start: 20130208, end: 20130321
  3. RIVOTRIL [Suspect]
     Indication: PROPHYLAXIS
     Dosage: .5MG PER DAY
     Route: 048
     Dates: start: 20130208, end: 20130321
  4. ZYPREXA [Suspect]
     Indication: SEDATION
     Dosage: 5MG PER DAY
     Route: 048
     Dates: start: 20130208
  5. LIMAS [Suspect]
     Indication: BIPOLAR DISORDER
     Dosage: 300MG TWICE PER DAY
     Route: 048
     Dates: start: 20130215
  6. MAGLAX [Suspect]
     Indication: CONSTIPATION
     Dosage: 660MG TWICE PER DAY
     Route: 048
     Dates: start: 20130215

REACTIONS (7)
  - Drug eruption [Unknown]
  - Herpes zoster [Unknown]
  - Pyrexia [Recovered/Resolved]
  - Rash [Not Recovered/Not Resolved]
  - Pyrexia [Recovered/Resolved]
  - Hyperthermia [Recovered/Resolved]
  - Pain [Unknown]
